FAERS Safety Report 25431489 (Version 1)
Quarter: 2025Q2

REPORT INFORMATION
  Report Type: Other
  Country: US (occurrence: US)
  Receive Date: 20250613
  Receipt Date: 20250613
  Transmission Date: 20250716
  Serious: Yes (Life-Threatening, Hospitalization)
  Sender: B BRAUN
  Company Number: US-B.Braun Medical Inc.-2178440

PATIENT
  Age: 37 Year
  Sex: Female

DRUGS (6)
  1. LIDOCAINE HYDROCHLORIDE [Suspect]
     Active Substance: LIDOCAINE HYDROCHLORIDE
     Indication: Local anaesthesia
  2. APIXABAN [Concomitant]
     Active Substance: APIXABAN
  3. PHENAZOPYRIDINE HYDROCHLORIDE [Suspect]
     Active Substance: PHENAZOPYRIDINE HYDROCHLORIDE
  4. SULFAMETHOXAZOLE\TRIMETHOPRIM [Suspect]
     Active Substance: SULFAMETHOXAZOLE\TRIMETHOPRIM
  5. OSILODROSTAT [Concomitant]
     Active Substance: OSILODROSTAT
  6. FLUOXETINE [Concomitant]
     Active Substance: FLUOXETINE HYDROCHLORIDE

REACTIONS (2)
  - Sulphaemoglobinaemia [Recovered/Resolved]
  - Respiratory alkalosis [Recovered/Resolved]
